FAERS Safety Report 9192512 (Version 4)
Quarter: 2013Q3

REPORT INFORMATION
  Report Type: Spontaneous
  Country: US (occurrence: US)
  Receive Date: 20130327
  Receipt Date: 20130906
  Transmission Date: 20140515
  Serious: Yes (Other)
  Sender: FDA-Public Use
  Company Number: US-PFIZER INC-2013095461

PATIENT
  Age: 68 Year
  Sex: Female

DRUGS (4)
  1. DILANTIN [Suspect]
     Indication: CONVULSION
     Dosage: 100 MG, 2 IN THE MORNING AND ONE AT H.S
  2. TEGRETOL [Suspect]
     Indication: CONVULSION
     Dosage: 200 MG TABLETS TWO IN THE MORNING, ONE AND A HALF AT NOON, AND TWO AT H.S. AND DILANTIN TWO IN THE M
  3. TEGRETOL [Suspect]
     Dosage: 400 MG, 3X/DAY
     Route: 048
  4. TRANXENE [Suspect]
     Dosage: 0.75 MG, 1X/DAY

REACTIONS (4)
  - Convulsion [Unknown]
  - Nervousness [Unknown]
  - Tremor [Unknown]
  - Staring [Unknown]
